FAERS Safety Report 14419612 (Version 3)
Quarter: 2018Q2

REPORT INFORMATION
  Report Type: Not Available
  Country: US (occurrence: US)
  Receive Date: 20180122
  Receipt Date: 20180531
  Transmission Date: 20180711
  Serious: No
  Sender: FDA-Public Use
  Company Number: US-NEUROCRINE BIOSCIENCES INC.-2017NBI02126

PATIENT
  Age: 76 Year
  Sex: Male

DRUGS (17)
  1. GLUCOPHAGE [Concomitant]
     Active Substance: METFORMIN HYDROCHLORIDE
     Route: 048
  2. ZOCOR [Concomitant]
     Active Substance: SIMVASTATIN
     Route: 048
  3. INGREZZA [Suspect]
     Active Substance: VALBENAZINE
     Route: 048
     Dates: start: 20171101, end: 2017
  4. INGREZZA [Suspect]
     Active Substance: VALBENAZINE
     Route: 048
     Dates: start: 20170929, end: 20180314
  5. ATIVAN [Concomitant]
     Active Substance: LORAZEPAM
     Route: 048
  6. BENTYL [Concomitant]
     Active Substance: DICYCLOMINE HYDROCHLORIDE
     Route: 048
  7. ACIPHEX [Concomitant]
     Active Substance: RABEPRAZOLE SODIUM
     Route: 048
  8. ASPIRIN. [Concomitant]
     Active Substance: ASPIRIN
     Route: 048
  9. CARDURA [Concomitant]
     Active Substance: DOXAZOSIN MESYLATE
     Route: 048
  10. PROSCAR [Concomitant]
     Active Substance: FINASTERIDE
     Route: 048
  11. TYLENOL [Concomitant]
     Active Substance: ACETAMINOPHEN
     Route: 048
  12. SYNTHROID [Concomitant]
     Active Substance: LEVOTHYROXINE SODIUM
     Route: 048
  13. INGREZZA [Suspect]
     Active Substance: VALBENAZINE
     Indication: TARDIVE DYSKINESIA
     Route: 048
     Dates: start: 20171024, end: 20171031
  14. ZOLOFT [Concomitant]
     Active Substance: SERTRALINE HYDROCHLORIDE
     Route: 048
  15. SIMETHICONE (DIMETHICONE) [Concomitant]
     Active Substance: DIMETHICONE
     Route: 048
  16. PROBIOTIC [Concomitant]
     Active Substance: PROBIOTICS NOS
     Dosage: 4X
     Route: 048
  17. ATROVENT [Concomitant]
     Active Substance: IPRATROPIUM BROMIDE
     Route: 045

REACTIONS (15)
  - Disturbance in attention [Unknown]
  - Drug ineffective [None]
  - Fatigue [Recovered/Resolved]
  - Gait disturbance [Unknown]
  - Visual impairment [Unknown]
  - Somnolence [Recovered/Resolved]
  - Wrong technique in product usage process [Unknown]
  - Libido disorder [Unknown]
  - Lethargy [Unknown]
  - Musculoskeletal stiffness [Recovered/Resolved]
  - Drooling [Unknown]
  - Dry mouth [Unknown]
  - Muscle tightness [Unknown]
  - Drug effect incomplete [None]
  - Balance disorder [Unknown]

NARRATIVE: CASE EVENT DATE: 2017
